FAERS Safety Report 14676380 (Version 3)
Quarter: 2018Q2

REPORT INFORMATION
  Report Type: Report from Study
  Country: None (occurrence: US)
  Receive Date: 20180323
  Receipt Date: 20180424
  Transmission Date: 20180711
  Serious: Yes (Death, Hospitalization, Other)
  Sender: FDA-Public Use
  Company Number: US-ABBVIE-18P-163-2292683-00

PATIENT
  Age: 71 Year
  Sex: Male
  Weight: 50.39 kg

DRUGS (2)
  1. VENCLEXTA [Suspect]
     Active Substance: VENETOCLAX
     Indication: CHRONIC LYMPHOCYTIC LEUKAEMIA
     Route: 048
  2. VENCLEXTA [Suspect]
     Active Substance: VENETOCLAX
     Route: 048
     Dates: start: 2017, end: 20180324

REACTIONS (7)
  - Acute pulmonary oedema [Unknown]
  - Chest pain [Unknown]
  - Red blood cell count decreased [Unknown]
  - Sepsis [Fatal]
  - Atrial fibrillation [Unknown]
  - Cardiac failure congestive [Unknown]
  - Transfusion [Unknown]

NARRATIVE: CASE EVENT DATE: 20180413
